FAERS Safety Report 4771336-X (Version None)
Quarter: 2005Q3

REPORT INFORMATION
  Report Type: 
  Country: None (occurrence: None)
  Receive Date: 20050915
  Receipt Date: 20050629
  Transmission Date: 20060218
  Serious: Yes (Hospitalization)
  Sender: FDA-Public Use
  Company Number: US-MERCK-0507USA00205

PATIENT
  Age: 75 Year
  Sex: Female
  Weight: 80 kg

DRUGS (34)
  1. VIOXX [Suspect]
     Indication: ARTHRITIS
     Route: 048
     Dates: start: 20030530, end: 20040101
  2. ATENOLOL [Concomitant]
     Indication: HYPERTENSION
     Route: 048
  3. ALLOPURINOL MSD [Concomitant]
     Route: 048
  4. ALLOPURINOL MSD [Concomitant]
     Route: 048
  5. PROTONIX [Concomitant]
     Route: 048
  6. PROTONIX [Concomitant]
     Route: 048
  7. FERROUS SULFATE [Concomitant]
     Route: 048
  8. FERROUS SULFATE [Concomitant]
     Route: 048
  9. ZOCOR [Concomitant]
     Route: 048
  10. ZOCOR [Concomitant]
     Route: 048
  11. PLAVIX [Concomitant]
     Route: 048
  12. PLAVIX [Concomitant]
     Route: 048
  13. VERAPAMIL MSD LP [Concomitant]
     Route: 048
  14. VERAPAMIL MSD LP [Concomitant]
     Route: 048
  15. VERAPAMIL MSD LP [Concomitant]
     Route: 048
  16. MAG-OX 400 TABLETS [Concomitant]
     Route: 048
  17. MAG-OX 400 TABLETS [Concomitant]
     Route: 048
  18. LASIX [Concomitant]
     Route: 048
  19. LASIX [Concomitant]
     Route: 048
  20. COUMADIN [Concomitant]
     Route: 048
  21. COUMADIN [Concomitant]
     Route: 048
  22. SYNTHROID [Concomitant]
     Route: 048
  23. SYNTHROID [Concomitant]
     Route: 048
  24. ASPIRIN [Concomitant]
     Route: 048
  25. ASPIRIN [Concomitant]
     Route: 048
  26. PREMARIN [Concomitant]
     Route: 048
  27. PREMARIN [Concomitant]
     Route: 048
  28. MECLIZINE [Concomitant]
     Route: 065
  29. MECLIZINE [Concomitant]
     Route: 065
  30. TYLENOL [Concomitant]
     Route: 048
  31. TYLENOL [Concomitant]
     Route: 048
  32. VIOXX [Concomitant]
     Route: 048
     Dates: start: 20040101, end: 20041002
  33. QUININE SULFATE [Concomitant]
     Route: 048
  34. QUININE SULFATE [Concomitant]
     Route: 048

REACTIONS (23)
  - AMNESIA [None]
  - BRONCHITIS ACUTE [None]
  - CAROTID ARTERY STENOSIS [None]
  - CEREBRAL ATROPHY [None]
  - CEREBRAL ISCHAEMIA [None]
  - CEREBROVASCULAR ACCIDENT [None]
  - CHILLS [None]
  - CONFUSIONAL STATE [None]
  - DEEP VEIN THROMBOSIS [None]
  - DIZZINESS [None]
  - DYSPNOEA [None]
  - HEADACHE [None]
  - HYPERHIDROSIS [None]
  - INTERNATIONAL NORMALISED RATIO INCREASED [None]
  - LUNG INFILTRATION [None]
  - LYMPHADENOPATHY MEDIASTINAL [None]
  - MUSCULAR WEAKNESS [None]
  - MYALGIA [None]
  - PLEURAL EFFUSION [None]
  - PRODUCTIVE COUGH [None]
  - SPUTUM DISCOLOURED [None]
  - VENTRICULAR HYPERTROPHY [None]
  - VISUAL DISTURBANCE [None]
